FAERS Safety Report 7354698-9 (Version None)
Quarter: 2011Q1

REPORT INFORMATION
  Report Type: 
  Country: None (occurrence: None)
  Receive Date: 20110316
  Receipt Date: 20110309
  Transmission Date: 20110831
  Serious: Yes (Hospitalization)
  Sender: FDA-Public Use
  Company Number: US-ELI_LILLY_AND_COMPANY-US201004000481

PATIENT
  Sex: Male

DRUGS (6)
  1. FORTEO [Suspect]
     Dosage: 20 UG, DAILY (1/D)
     Dates: start: 20100315
  2. FORTEO [Suspect]
     Dosage: 20 UG, DAILY (1/D)
  3. OXYCONTIN [Concomitant]
  4. FORTEO [Suspect]
     Indication: OSTEOPOROSIS
     Dosage: 20 UG, DAILY (1/D)
     Dates: start: 20090601, end: 20100101
  5. FENTANYL [Concomitant]
     Indication: PAIN
  6. MORPHINE [Concomitant]

REACTIONS (4)
  - PNEUMONIA [None]
  - DRUG DOSE OMISSION [None]
  - BACTERIAL INFECTION [None]
  - INJECTION SITE PAIN [None]
